FAERS Safety Report 13056689 (Version 9)
Quarter: 2017Q4

REPORT INFORMATION
  Report Type: Report from Study
  Country: None (occurrence: AU)
  Receive Date: 20161222
  Receipt Date: 20171211
  Transmission Date: 20180320
  Serious: Yes (Hospitalization, Disabling, Other)
  Sender: FDA-Public Use
  Company Number: AU-ABBVIE-16P-008-1812813-00

PATIENT
  Age: 67 Year
  Sex: Male
  Weight: 84 kg

DRUGS (21)
  1. ELDEPRYL [Concomitant]
     Active Substance: SELEGILINE HYDROCHLORIDE
     Indication: PARKINSON^S DISEASE
     Route: 048
     Dates: start: 2001
  2. PANADOL [Concomitant]
     Active Substance: ACETAMINOPHEN
     Indication: BACK PAIN
     Route: 048
     Dates: start: 20171005
  3. CLEXANE [Concomitant]
     Active Substance: ENOXAPARIN SODIUM
     Indication: PRODUCT USED FOR UNKNOWN INDICATION
     Route: 058
     Dates: start: 20161208, end: 20170207
  4. DUODART [Concomitant]
     Active Substance: DUTASTERIDE\TAMSULOSIN
     Indication: PRODUCT USED FOR UNKNOWN INDICATION
     Route: 048
     Dates: start: 201208
  5. NORSPAN [Concomitant]
     Active Substance: BUPRENORPHINE
     Indication: PAIN
     Route: 062
     Dates: start: 20170827
  6. BION TEARS [Concomitant]
     Active Substance: DEXTRAN 70\HYPROMELLOSE 2910 (4000 MPA.S)
     Indication: PARKINSON^S DISEASE
     Route: 047
     Dates: start: 20170305
  7. CEFTRIAXONE. [Concomitant]
     Active Substance: CEFTRIAXONE
     Indication: LUNG DISORDER
     Dates: start: 20161211, end: 20161229
  8. VITAMIN D3 [Concomitant]
     Active Substance: CHOLECALCIFEROL
     Indication: VITAMIN D DECREASED
     Route: 048
     Dates: start: 20170305
  9. DUODOPA [Suspect]
     Active Substance: CARBIDOPA\LEVODOPA
     Indication: PARKINSON^S DISEASE
     Route: 050
     Dates: start: 20161101, end: 20161111
  10. SINEMET CR [Concomitant]
     Active Substance: CARBIDOPA\LEVODOPA
     Indication: PARKINSON^S DISEASE
     Dosage: 200/50MG QD
     Route: 048
     Dates: start: 20131109
  11. DIAZEPAM. [Concomitant]
     Active Substance: DIAZEPAM
     Indication: PARKINSON^S DISEASE
     Route: 048
     Dates: start: 20170305
  12. LYRICA [Concomitant]
     Active Substance: PREGABALIN
     Indication: NEURALGIA
     Dates: start: 20170305
  13. ENDONE [Concomitant]
     Active Substance: OXYCODONE HYDROCHLORIDE
     Indication: PAIN
     Dosage: 2.5 - 5.0 MG
     Route: 048
     Dates: start: 20170305
  14. LANOLIN. [Concomitant]
     Active Substance: LANOLIN
     Indication: PARKINSON^S DISEASE
     Route: 061
     Dates: start: 20170314
  15. ALLEGRON [Concomitant]
     Indication: DEPRESSION
     Route: 048
     Dates: start: 20170305
  16. DUODOPA [Suspect]
     Active Substance: CARBIDOPA\LEVODOPA
     Dosage: MD 6.5, CD 6.5, ED 3, FOR 16 HOURS
     Route: 050
     Dates: start: 20161111
  17. TEMAZEPAM. [Concomitant]
     Active Substance: TEMAZEPAM
     Indication: PARKINSON^S DISEASE
     Route: 048
     Dates: start: 20140722, end: 20170304
  18. PARAFFIN EYE OINTMENT [Concomitant]
     Indication: PARKINSON^S DISEASE
     Route: 047
     Dates: start: 20170305
  19. PANTOPRAZOLE [Concomitant]
     Active Substance: PANTOPRAZOLE
     Indication: PRODUCT USED FOR UNKNOWN INDICATION
     Route: 048
  20. CLONEA [Concomitant]
     Active Substance: CLOTRIMAZOLE
     Indication: SKIN EXFOLIATION
     Route: 061
     Dates: start: 20170314
  21. MOVICOL [Concomitant]
     Active Substance: POLYETHYLENE GLYCOL 3350\POTASSIUM CHLORIDE\SODIUM BICARBONATE\SODIUM CHLORIDE
     Indication: PARKINSON^S DISEASE
     Route: 048
     Dates: start: 20170305

REACTIONS (4)
  - Hypertension [Recovered/Resolved]
  - Spondylolisthesis [Not Recovered/Not Resolved]
  - Hypertension [Recovered/Resolved]
  - Cervical spinal stenosis [Not Recovered/Not Resolved]

NARRATIVE: CASE EVENT DATE: 20161102
